FAERS Safety Report 8788616 (Version 2)
Quarter: 2012Q4

REPORT INFORMATION
  Report Type: 
  Country: AU (occurrence: AU)
  Receive Date: 20120917
  Receipt Date: 20120925
  Transmission Date: 20130627
  Serious: Yes (Death, Hospitalization)
  Sender: FDA-Public Use
  Company Number: AU-RANBAXY-2012RR-59878

PATIENT
  Age: 85 Year
  Sex: Female

DRUGS (2)
  1. SIMVASTATIN [Suspect]
     Indication: HYPERCHOLESTEROLAEMIA
     Dosage: 20 mg daily
     Route: 065
  2. VORICONAZOLE [Interacting]
     Indication: KERATITIS FUNGAL
     Dosage: 200 mg, bid, 32 days before her admission
     Route: 048

REACTIONS (4)
  - Rhabdomyolysis [Fatal]
  - Respiratory muscle weakness [Fatal]
  - Respiratory failure [Fatal]
  - Drug interaction [Fatal]
